FAERS Safety Report 8834735 (Version 1)
Quarter: 2012Q4

REPORT INFORMATION
  Report Type: Spontaneous
  Country: DE (occurrence: None)
  Receive Date: 20121009
  Receipt Date: 20121009
  Transmission Date: 20130627
  Serious: Yes (Hospitalization)
  Sender: FDA-Public Use
  Company Number: ABR_00647_2012

PATIENT
  Sex: Female

DRUGS (1)
  1. NITROLINGUAL [Suspect]
     Indication: PRODUCT USED FOR UNKNOWN INDICATION
     Dosage: (0.4 mg Sublingual)
     Route: 060

REACTIONS (3)
  - Drug hypersensitivity [None]
  - Hypertension [None]
  - Aphonia [None]
